FAERS Safety Report 6344837-0 (Version None)
Quarter: 2009Q3

REPORT INFORMATION
  Report Type: 
  Country: None (occurrence: None)
  Receive Date: 20090904
  Receipt Date: 20090824
  Transmission Date: 20100115
  Serious: Yes (Death)
  Sender: FDA-Public Use
  Company Number: AUR-APL-2009-00480

PATIENT
  Age: 32 Year
  Sex: Female

DRUGS (1)
  1. STAVUDINE [Suspect]
     Indication: HIV INFECTION

REACTIONS (4)
  - DRUG EXPOSURE DURING PREGNANCY [None]
  - HEPATIC FAILURE [None]
  - LACTIC ACIDOSIS [None]
  - TACHYPNOEA [None]
